FAERS Safety Report 15603388 (Version 8)
Quarter: 2020Q2

REPORT INFORMATION
  Report Type: Report from Study
  Country: US (occurrence: US)
  Receive Date: 20181109
  Receipt Date: 20200611
  Transmission Date: 20200713
  Serious: Yes (Death, Hospitalization, Other)
  Sender: FDA-Public Use
  Company Number: US-ACTELION-A-NJ2018-181512

PATIENT
  Age: 62 Year
  Sex: Female
  Weight: 77.1 kg

DRUGS (1)
  1. OPSUMIT [Suspect]
     Active Substance: MACITENTAN
     Indication: PULMONARY HYPERTENSION
     Dosage: 10 MG, QD
     Route: 048

REACTIONS (27)
  - Staphylococcal sepsis [Unknown]
  - Chest pain [Unknown]
  - Endocarditis [Unknown]
  - Pneumonia [Unknown]
  - Pelvic fracture [Unknown]
  - Acute left ventricular failure [Unknown]
  - Respiratory syncytial virus infection [Unknown]
  - Oedema peripheral [Unknown]
  - Dyspnoea exertional [Unknown]
  - Thrombocytopenia [Unknown]
  - Septic shock [Fatal]
  - Pleural effusion [Unknown]
  - Dyspnoea [Unknown]
  - Condition aggravated [Unknown]
  - Cardio-respiratory arrest [Unknown]
  - Generalised oedema [Unknown]
  - Adverse reaction [Unknown]
  - Cardiac failure congestive [Fatal]
  - Urinary tract infection [Fatal]
  - Fall [Unknown]
  - Lactic acidosis [Unknown]
  - Rhinovirus infection [Unknown]
  - Hypoglycaemia [Unknown]
  - Staphylococcal infection [Unknown]
  - Neck pain [Unknown]
  - Immunodeficiency [Unknown]
  - Pulmonary arterial hypertension [Unknown]

NARRATIVE: CASE EVENT DATE: 20200405
